FAERS Safety Report 11440807 (Version 1)
Quarter: 2015Q3

REPORT INFORMATION
  Report Type: Spontaneous
  Country: US (occurrence: None)
  Receive Date: 20150831
  Receipt Date: 20150831
  Transmission Date: 20151125
  Serious: Yes (Life-Threatening, Other)
  Sender: FDA-Public Use
  Company Number: None

PATIENT
  Age: 45 Year
  Sex: Female
  Weight: 58.97 kg

DRUGS (1)
  1. WELLBUTRIN SR [Suspect]
     Active Substance: BUPROPION HYDROCHLORIDE
     Dosage: 2 PILLS TWICE DAILY TAKEN BY MOUTH
     Route: 048

REACTIONS (4)
  - Depression suicidal [None]
  - Product substitution issue [None]
  - Drug ineffective [None]
  - Impaired work ability [None]

NARRATIVE: CASE EVENT DATE: 20150824
